FAERS Safety Report 19714845 (Version 1)
Quarter: 2021Q3

REPORT INFORMATION
  Report Type: Spontaneous
  Country: US (occurrence: US)
  Receive Date: 20210818
  Receipt Date: 20210818
  Transmission Date: 20211014
  Serious: No
  Sender: FDA-Public Use
  Company Number: US-SA-2021SA271459

PATIENT
  Sex: Female

DRUGS (1)
  1. DUPIXENT [Suspect]
     Active Substance: DUPILUMAB
     Indication: ASTHMA
     Dosage: INJECT 600MG (2 PENS) SUBCUTANEOUSLY ON DAY 1
     Route: 058

REACTIONS (2)
  - Product use issue [Unknown]
  - Vision blurred [Unknown]
